FAERS Safety Report 8172372-6 (Version None)
Quarter: 2012Q1

REPORT INFORMATION
  Report Type: 
  Country: None (occurrence: None)
  Receive Date: 20120229
  Receipt Date: 20120221
  Transmission Date: 20120608
  Serious: No
  Sender: FDA-Public Use
  Company Number: US-BIOGENIDEC-2012BI006604

PATIENT
  Sex: Female

DRUGS (2)
  1. AVONEX [Suspect]
     Indication: MULTIPLE SCLEROSIS
     Route: 030
     Dates: start: 20020506, end: 20110630
  2. AVONEX [Suspect]
     Route: 030
     Dates: start: 20110901

REACTIONS (2)
  - EMOTIONAL DISTRESS [None]
  - STRESS [None]
